FAERS Safety Report 18588627 (Version 1)
Quarter: 2020Q4

REPORT INFORMATION
  Report Type: Spontaneous
  Country: US (occurrence: US)
  Receive Date: 20201208
  Receipt Date: 20201208
  Transmission Date: 20210114
  Serious: Yes (Other)
  Sender: FDA-Public Use
  Company Number: US-ABBVIE-20K-163-3677106-00

PATIENT
  Sex: Female
  Weight: 64.47 kg

DRUGS (6)
  1. SYNTHROID [Suspect]
     Active Substance: LEVOTHYROXINE SODIUM
     Dosage: SYNTHROID 50MCG
     Route: 048
     Dates: start: 202008
  2. PLAVIX (NON-ABBVIE) [Concomitant]
     Indication: BLOOD CHOLESTEROL
  3. SYNTHROID [Suspect]
     Active Substance: LEVOTHYROXINE SODIUM
     Indication: HYPOTHYROIDISM
     Dosage: GENERIC LEVOTHYROXINE UNKNOWN MANUFACTURER
     Route: 048
     Dates: start: 2020, end: 202006
  4. VERAPAMIL (NON-ABBVIE) [Concomitant]
     Indication: CARDIAC DISORDER
  5. SYNTHROID [Suspect]
     Active Substance: LEVOTHYROXINE SODIUM
     Dosage: GENERIC LEVOTHYROXINE UNKNOWN MANUFACTURER
     Route: 048
     Dates: start: 202006, end: 202007
  6. SYNTHROID [Suspect]
     Active Substance: LEVOTHYROXINE SODIUM
     Dosage: GENERIC LEVOTHYROXINE UNKNOWN MANUFACTURER
     Route: 048
     Dates: start: 202007, end: 202008

REACTIONS (6)
  - Heart injury [Recovering/Resolving]
  - Asthenia [Recovering/Resolving]
  - Muscular weakness [Not Recovered/Not Resolved]
  - Fatigue [Recovering/Resolving]
  - Muscle spasms [Not Recovered/Not Resolved]
  - Coronary artery occlusion [Recovering/Resolving]

NARRATIVE: CASE EVENT DATE: 2020
